FAERS Safety Report 11070518 (Version 1)
Quarter: 2015Q2

REPORT INFORMATION
  Report Type: Spontaneous
  Country: US (occurrence: US)
  Receive Date: 20150427
  Receipt Date: 20150427
  Transmission Date: 20150821
  Serious: Yes (Life-Threatening, Hospitalization, Other)
  Sender: FDA-Public Use
  Company Number: US-MYLANLABS-2015M1014154

PATIENT

DRUGS (1)
  1. VANCOMYCIN [Suspect]
     Active Substance: VANCOMYCIN
     Indication: SICKLE CELL ANAEMIA
     Route: 041

REACTIONS (7)
  - Red man syndrome [Unknown]
  - Condition aggravated [Unknown]
  - Sickle cell anaemia with crisis [Unknown]
  - Myocardial ischaemia [Unknown]
  - Cerebral ischaemia [Unknown]
  - Retinal artery occlusion [Unknown]
  - Blindness [Recovering/Resolving]
